FAERS Safety Report 14246093 (Version 3)
Quarter: 2018Q1

REPORT INFORMATION
  Report Type: Spontaneous
  Country: JP (occurrence: JP)
  Receive Date: 20171204
  Receipt Date: 20180320
  Transmission Date: 20180508
  Serious: Yes (Other)
  Sender: FDA-Public Use
  Company Number: JP-AMGEN-JPNSP2017179950

PATIENT
  Age: 50 Year
  Sex: Female
  Weight: 53 kg

DRUGS (10)
  1. AFATINIB MALEATE [Suspect]
     Active Substance: AFATINIB DIMALEATE
     Dosage: 20 MG, UNK
     Route: 065
     Dates: start: 201607
  2. DEPAS [Concomitant]
     Active Substance: ETIZOLAM
     Dosage: 1 MG, BID
     Route: 065
  3. GILOTRIF [Concomitant]
     Active Substance: AFATINIB
     Dosage: 20 MG, QD
     Route: 065
  4. CINAL [Concomitant]
     Active Substance: ASCORBIC ACID\CALCIUM PANTOTHENATE
     Dosage: 1 DF, TID
     Route: 065
  5. RANMARK [Suspect]
     Active Substance: DENOSUMAB
     Indication: METASTASES TO BONE
     Dosage: 120 MG, UNK
     Route: 058
     Dates: start: 20160531
  6. HIRUDOID [Concomitant]
     Active Substance: GLYCOSAMINOGLYCANS
     Dosage: UNK, BID
     Route: 065
  7. MIYA-BM [Concomitant]
     Active Substance: CLOSTRIDIUM BUTYRICUM SPORES STRAIN M-55
     Dosage: 40 MG, TID
     Route: 065
  8. AFATINIB MALEATE [Suspect]
     Active Substance: AFATINIB DIMALEATE
     Indication: PRODUCT USED FOR UNKNOWN INDICATION
     Dosage: 30 MG, QD
     Route: 065
     Dates: start: 20160501
  9. AFATINIB MALEATE [Suspect]
     Active Substance: AFATINIB DIMALEATE
     Dosage: UNK
     Route: 065
  10. DENOTAS [Concomitant]
     Active Substance: CALCIUM CARBONATE\CHOLECALCIFEROL\MAGNESIUM CARBONATE
     Dosage: 2 DF, QD
     Route: 065

REACTIONS (6)
  - Diarrhoea [Unknown]
  - Rash [Unknown]
  - Stomatitis [Unknown]
  - Otitis media [Unknown]
  - Osteomyelitis [Unknown]
  - Metastases to central nervous system [Unknown]

NARRATIVE: CASE EVENT DATE: 201606
